FAERS Safety Report 5209547-1 (Version None)
Quarter: 2007Q1

REPORT INFORMATION
  Report Type: 
  Country: None (occurrence: None)
  Receive Date: 20070111
  Receipt Date: 20061218
  Transmission Date: 20070707
  Serious: Yes (Death, Hospitalization)
  Sender: FDA-Public Use
  Company Number: 8021117

PATIENT
  Sex: Female

DRUGS (2)
  1. KEPPRA [Suspect]
     Indication: CONVULSION
     Dosage: 500 MG TWICE IV
     Route: 042
  2. KEPPRA [Suspect]
     Indication: CONVULSION
     Dosage: 50 MG 2/D PO
     Route: 048

REACTIONS (1)
  - MULTI-ORGAN FAILURE [None]
